FAERS Safety Report 19496381 (Version 1)
Quarter: 2021Q3

REPORT INFORMATION
  Report Type: Spontaneous
  Country: US (occurrence: US)
  Receive Date: 20210702
  Receipt Date: 20210702
  Transmission Date: 20211014
  Serious: No
  Sender: FDA-Public Use
  Company Number: None

PATIENT
  Age: 76 Year
  Sex: Female

DRUGS (1)
  1. APIXABAN (APIXABAN 5MG TAB) [Suspect]
     Active Substance: APIXABAN
     Indication: ATRIAL FIBRILLATION
     Route: 048
     Dates: start: 20160106, end: 20201101

REACTIONS (4)
  - Head injury [None]
  - Subarachnoid haemorrhage [None]
  - Fall [None]
  - Subdural haematoma [None]

NARRATIVE: CASE EVENT DATE: 20201012
